FAERS Safety Report 7295236-9 (Version None)
Quarter: 2011Q1

REPORT INFORMATION
  Report Type: 
  Country: None (occurrence: None)
  Receive Date: 20110216
  Receipt Date: 20101229
  Transmission Date: 20110831
  Serious: No
  Sender: FDA-Public Use
  Company Number: A0902610A

PATIENT
  Age: 63 Year
  Sex: Male

DRUGS (1)
  1. VOTRIENT [Suspect]
     Dosage: 400MG PER DAY
     Route: 065
     Dates: start: 20101220

REACTIONS (4)
  - CHROMATURIA [None]
  - FEELING COLD [None]
  - FATIGUE [None]
  - CHILLS [None]
